FAERS Safety Report 19682710 (Version 4)
Quarter: 2022Q2

REPORT INFORMATION
  Report Type: Report from Study
  Country: US (occurrence: US)
  Receive Date: 20210810
  Receipt Date: 20220411
  Transmission Date: 20220721
  Serious: Yes (Other)
  Sender: FDA-Public Use
  Company Number: US-SHIRE-US201848005AA

PATIENT
  Age: 66 Year
  Sex: Male

DRUGS (2)
  1. HUMAN IMMUNOGLOBULIN G [Suspect]
     Active Substance: HUMAN IMMUNOGLOBULIN G
     Indication: Immunodeficiency common variable
     Dosage: UNK
     Route: 042
  2. HUMAN IMMUNOGLOBULIN G [Suspect]
     Active Substance: HUMAN IMMUNOGLOBULIN G
     Dosage: 50 GRAM, MONTHLY
     Route: 065

REACTIONS (9)
  - Bronchitis [Unknown]
  - COVID-19 pneumonia [Unknown]
  - Blood pressure increased [Unknown]
  - Pain in extremity [Unknown]
  - Musculoskeletal discomfort [Recovered/Resolved]
  - Spinal disorder [Recovered/Resolved]
  - Sinusitis [Unknown]
  - White blood cell count decreased [Unknown]
  - Oropharyngeal pain [Unknown]

NARRATIVE: CASE EVENT DATE: 20210421
